FAERS Safety Report 10420446 (Version 1)
Quarter: 2014Q1

REPORT INFORMATION
  Report Type: Spontaneous
  Country: US (occurrence: None)
  Receive Date: 20130724
  Receipt Date: 20130724
  Transmission Date: 20141002
  Serious: Yes (Other)
  Sender: FDA-Public Use
  Company Number: PHEH2012US024631

PATIENT
  Age: 64 Year
  Sex: Female

DRUGS (3)
  1. HYDROCHLOROTHIAZIDE\VALSARTAN [Suspect]
     Indication: BLOOD PRESSURE
     Route: 048
  2. MULTIVITAMINS (ASCORBIC ACID, ERGOCALCIFEROL, FOLIC ACID, NICOTINAMIDE, PANTHENOL, RETINOL, RIBOFLAVIN, THIAMINE HYDROCHLORIDE) [Concomitant]
  3. OMEGAVIT (ASCORBIC ACID, COPPER SULFATE, CYANOCOBALAMIN, FERROUS GLUCONATE, FOLIC ACID, MANGANESE SULFATE) [Concomitant]

REACTIONS (2)
  - Blood pressure increased [None]
  - Chest pain [None]
